FAERS Safety Report 9939257 (Version 1)
Quarter: 2014Q1

REPORT INFORMATION
  Report Type: Report from Study
  Country: US (occurrence: US)
  Receive Date: 20140303
  Receipt Date: 20140303
  Transmission Date: 20141002
  Serious: No
  Sender: FDA-Public Use
  Company Number: US-ABBVIE-13P-163-1037435-00

PATIENT
  Sex: Female
  Weight: 59.93 kg

DRUGS (8)
  1. HUMIRA [Suspect]
     Indication: PSORIASIS
     Dates: start: 2010, end: 201210
  2. HUMIRA [Suspect]
     Indication: PSORIATIC ARTHROPATHY
  3. ENBREL [Concomitant]
     Indication: PSORIASIS
     Dates: start: 2012
  4. ENBREL [Concomitant]
     Indication: PSORIATIC ARTHROPATHY
  5. NORCO [Concomitant]
     Indication: PAIN
  6. FOLIC ACID [Concomitant]
     Indication: PRODUCT USED FOR UNKNOWN INDICATION
  7. RHEUMATREX [Concomitant]
     Indication: PSORIATIC ARTHROPATHY
  8. LEXAPRO [Concomitant]
     Indication: DEPRESSION

REACTIONS (1)
  - Psoriasis [Not Recovered/Not Resolved]
